FAERS Safety Report 10472608 (Version 1)
Quarter: 2014Q3

REPORT INFORMATION
  Report Type: Spontaneous
  Country: US (occurrence: US)
  Receive Date: 20140924
  Receipt Date: 20140924
  Transmission Date: 20150326
  Serious: Yes (Hospitalization)
  Sender: FDA-Public Use
  Company Number: US-ASTELLAS-2014US012839

PATIENT
  Age: 74 Year
  Sex: Male

DRUGS (1)
  1. PROGRAF [Suspect]
     Active Substance: TACROLIMUS\TACROLIMUS ANHYDROUS
     Indication: RENAL TRANSPLANT
     Dosage: 2MG/1ML, AM AND PM
     Route: 048
     Dates: start: 20060217

REACTIONS (1)
  - Investigation [Unknown]

NARRATIVE: CASE EVENT DATE: 201409
